FAERS Safety Report 23405969 (Version 1)
Quarter: 2024Q1

REPORT INFORMATION
  Report Type: Spontaneous
  Country: US (occurrence: None)
  Receive Date: 20240114
  Receipt Date: 20240114
  Transmission Date: 20240409
  Serious: Yes (Hospitalization, Disabling, Other)
  Sender: FDA-Public Use
  Company Number: None

PATIENT
  Age: 20 Year
  Sex: Male
  Weight: 63 kg

DRUGS (2)
  1. HERBALS\MITRAGYNINE [Suspect]
     Active Substance: HERBALS\MITRAGYNINE
     Indication: Disturbance in attention
     Dates: start: 20200101, end: 20240101
  2. Nonek [Concomitant]

REACTIONS (10)
  - Drug dependence [None]
  - Tremor [None]
  - Depression [None]
  - Decreased appetite [None]
  - Weight decreased [None]
  - Anxiety [None]
  - Dyspepsia [None]
  - Fear [None]
  - Paranoia [None]
  - Job dissatisfaction [None]

NARRATIVE: CASE EVENT DATE: 20240101
